FAERS Safety Report 8010084-X (Version None)
Quarter: 2011Q4

REPORT INFORMATION
  Report Type: 
  Country: None (occurrence: None)
  Receive Date: 20111228
  Receipt Date: 20111222
  Transmission Date: 20120403
  Serious: Yes (Death, Hospitalization)
  Sender: FDA-Public Use
  Company Number: US-BRISTOL-MYERS SQUIBB COMPANY-14447510

PATIENT
  Age: 64 Year
  Sex: Female
  Weight: 82 kg

DRUGS (2)
  1. CISPLATIN [Suspect]
     Indication: HEAD AND NECK CANCER
     Dosage: INITIAL INFUSION ON 29-OCT-2008; TOTAL NO OF COURSES-7.
     Route: 042
     Dates: start: 20081124, end: 20081124
  2. ERBITUX [Suspect]
     Indication: HEAD AND NECK CANCER
     Dosage: INITIATED ON 29OCT08 HELD ON 01DEC08 RECEIVED 460 MG ON 08DEC AND 15DEC08 NO OF INF-7
     Route: 042
     Dates: start: 20081124

REACTIONS (18)
  - BLOOD BILIRUBIN INCREASED [None]
  - ORAL PAIN [None]
  - BLOOD POTASSIUM DECREASED [None]
  - NEUTROPHIL COUNT DECREASED [None]
  - LUNG INFECTION [None]
  - SEPSIS [None]
  - CONFUSIONAL STATE [None]
  - WHITE BLOOD CELL COUNT DECREASED [None]
  - STOMATITIS [None]
  - BLOOD SODIUM INCREASED [None]
  - DEHYDRATION [None]
  - BLOOD ALBUMIN DECREASED [None]
  - PLATELET COUNT DECREASED [None]
  - GASTROINTESTINAL FISTULA [None]
  - FATIGUE [None]
  - MULTI-ORGAN FAILURE [None]
  - BLOOD CREATININE INCREASED [None]
  - BLOOD CALCIUM DECREASED [None]
